FAERS Safety Report 22204866 (Version 1)
Quarter: 2023Q2

REPORT INFORMATION
  Report Type: Spontaneous
  Country: BF (occurrence: BF)
  Receive Date: 20230413
  Receipt Date: 20230413
  Transmission Date: 20230722
  Serious: Yes (Hospitalization, Other)
  Sender: FDA-Public Use
  Company Number: None

PATIENT
  Age: 40 Year
  Sex: Male

DRUGS (2)
  1. IBUPROFEN [Suspect]
     Active Substance: IBUPROFEN
     Indication: Tooth disorder
     Route: 065
  2. IBUPROFEN [Suspect]
     Active Substance: IBUPROFEN
     Indication: Pain

REACTIONS (13)
  - Peritonitis [Recovered/Resolved]
  - Osteitis [Unknown]
  - Self-medication [Unknown]
  - Genital swelling [None]
  - Fistula [None]
  - Purulence [None]
  - Oral dysaesthesia [None]
  - Poor personal hygiene [None]
  - Dental caries [None]
  - Pathological fracture [None]
  - Jaw fracture [None]
  - Cellulitis [None]
  - Gastric ulcer perforation [None]
